FAERS Safety Report 7810834-9 (Version None)
Quarter: 2011Q4

REPORT INFORMATION
  Report Type: 
  Country: None (occurrence: None)
  Receive Date: 20111013
  Receipt Date: 20111007
  Transmission Date: 20120403
  Serious: Yes (Other)
  Sender: FDA-Public Use
  Company Number: US-BAYER-2011-083893

PATIENT
  Age: 59 Year
  Sex: Female

DRUGS (9)
  1. NEURONTIN [Concomitant]
     Dosage: UNK
  2. BETASERON [Suspect]
     Indication: RELAPSING-REMITTING MULTIPLE SCLEROSIS
     Dosage: UNK
     Route: 058
     Dates: start: 20101206, end: 20110830
  3. LOSARTAN POTASSIUM [Concomitant]
     Dosage: UNK
  4. FAMPRIDINE [Concomitant]
     Dosage: UNK
  5. AMLODIPINE [Concomitant]
  6. NEXIUM [Concomitant]
     Dosage: UNK
  7. CRESTOR [Concomitant]
  8. ETODOLAC [Concomitant]
     Dosage: DAILY DOSE 400 MG
     Dates: end: 20110829
  9. CELEXA [Concomitant]

REACTIONS (8)
  - ALANINE AMINOTRANSFERASE INCREASED [None]
  - ASPARTATE AMINOTRANSFERASE INCREASED [None]
  - WHITE BLOOD CELL COUNT DECREASED [None]
  - NEPHROLITHIASIS [None]
  - BLOOD ALKALINE PHOSPHATASE INCREASED [None]
  - CENTRAL NERVOUS SYSTEM LESION [None]
  - ABDOMINAL PAIN UPPER [None]
  - DIARRHOEA [None]
